FAERS Safety Report 20824886 (Version 1)
Quarter: 2022Q2

REPORT INFORMATION
  Report Type: Spontaneous
  Country: JP (occurrence: JP)
  Receive Date: 20220513
  Receipt Date: 20220513
  Transmission Date: 20220720
  Serious: Yes (Other)
  Sender: FDA-Public Use
  Company Number: JP-PFIZER INC-202200636548

PATIENT

DRUGS (4)
  1. SPIRONOLACTONE [Suspect]
     Active Substance: SPIRONOLACTONE
     Indication: Ascites
     Dosage: 25 MG 2 TABLETS
  2. SPIRONOLACTONE [Suspect]
     Active Substance: SPIRONOLACTONE
     Indication: Blood potassium abnormal
     Dosage: 25 MG 4 TABLETS
  3. LASIX [Concomitant]
     Active Substance: FUROSEMIDE
     Indication: Ascites
     Dosage: 20 MG 1 TABLET
  4. LASIX [Concomitant]
     Active Substance: FUROSEMIDE
     Dosage: 20 MG 2 TABLETS

REACTIONS (2)
  - Ascites [Unknown]
  - Condition aggravated [Unknown]
